FAERS Safety Report 24961670 (Version 4)
Quarter: 2025Q2

REPORT INFORMATION
  Report Type: Spontaneous
  Country: AU (occurrence: AU)
  Receive Date: 20250212
  Receipt Date: 20250422
  Transmission Date: 20250717
  Serious: No
  Sender: PFIZER
  Company Number: AU-PFIZER INC-202500028788

PATIENT
  Age: 76 Year
  Sex: Female

DRUGS (1)
  1. ENBREL [Suspect]
     Active Substance: ETANERCEPT
     Dates: start: 202302

REACTIONS (3)
  - Device mechanical issue [Unknown]
  - Inappropriate schedule of product administration [Unknown]
  - Needle issue [Unknown]
